FAERS Safety Report 17118089 (Version 1)
Quarter: 2019Q4

REPORT INFORMATION
  Report Type: Spontaneous
  Country: FR (occurrence: FR)
  Receive Date: 20191205
  Receipt Date: 20191205
  Transmission Date: 20200122
  Serious: Yes (Hospitalization, Other)
  Sender: FDA-Public Use
  Company Number: FR-GALDERMA-FR19062842

PATIENT
  Age: 30 Year
  Sex: Male

DRUGS (1)
  1. DOXYCYCLINE. [Suspect]
     Active Substance: DOXYCYCLINE
     Indication: MALARIA PROPHYLAXIS
     Route: 048
     Dates: start: 2018, end: 20181011

REACTIONS (3)
  - Product use in unapproved indication [Recovered/Resolved]
  - Jaundice cholestatic [Not Recovered/Not Resolved]
  - Renal failure [Not Recovered/Not Resolved]

NARRATIVE: CASE EVENT DATE: 2018
